FAERS Safety Report 10431304 (Version 1)
Quarter: 2014Q3

REPORT INFORMATION
  Report Type: Spontaneous
  Country: US (occurrence: None)
  Receive Date: 20140815
  Receipt Date: 20140815
  Transmission Date: 20150326
  Serious: Yes (Other)
  Sender: FDA-Public Use
  Company Number: US-2014-10681

PATIENT
  Age: 26 Year
  Sex: Male

DRUGS (1)
  1. ABILIFY MAINTENA [Suspect]
     Active Substance: ARIPIPRAZOLE
     Indication: SCHIZOAFFECTIVE DISORDER BIPOLAR TYPE
     Route: 030
     Dates: start: 20140208, end: 20140307

REACTIONS (2)
  - Off label use [None]
  - Akathisia [None]

NARRATIVE: CASE EVENT DATE: 20140208
